FAERS Safety Report 19061303 (Version 1)
Quarter: 2021Q1

REPORT INFORMATION
  Report Type: Spontaneous
  Country: CA (occurrence: CA)
  Receive Date: 20210325
  Receipt Date: 20210325
  Transmission Date: 20210420
  Serious: Yes (Hospitalization)
  Sender: FDA-Public Use
  Company Number: CA-TEVA-2021-CA-1892735

PATIENT
  Age: 13 Year
  Sex: Male
  Weight: 78 kg

DRUGS (11)
  1. ACETAMINOPHEN. [Concomitant]
     Active Substance: ACETAMINOPHEN
  2. EPINEPHRINE. [Concomitant]
     Active Substance: EPINEPHRINE
  3. PREDNISONE. [Suspect]
     Active Substance: PREDNISONE
     Indication: NEPHROTIC SYNDROME
     Dosage: 20 MILLIGRAM DAILY;
     Route: 048
  4. DIPHENHYDRAMINE. [Concomitant]
     Active Substance: DIPHENHYDRAMINE
  5. NYSTATIN. [Concomitant]
     Active Substance: NYSTATIN
  6. TACROLIMUS. [Suspect]
     Active Substance: TACROLIMUS
     Indication: NEPHROTIC SYNDROME
     Dosage: 21 MILLIGRAM DAILY;
     Route: 048
  7. CHOLECALCIFERO [Concomitant]
  8. CALCIUM [Concomitant]
     Active Substance: CALCIUM
  9. HYDROCORTISONE. [Concomitant]
     Active Substance: HYDROCORTISONE
  10. LANSOPRAZOLE. [Concomitant]
     Active Substance: LANSOPRAZOLE
  11. TRIMETHOPRIM SULFAMETHOXAZOLE [Concomitant]
     Active Substance: SULFAMETHOXAZOLE\TRIMETHOPRIM

REACTIONS (7)
  - Diabetes mellitus [Recovered/Resolved]
  - Diabetic ketoacidosis [Recovered/Resolved]
  - Dizziness [Recovered/Resolved]
  - Asthenia [Recovered/Resolved]
  - Headache [Recovered/Resolved]
  - Hyperglycaemia [Recovered/Resolved]
  - Vomiting [Recovered/Resolved]
